FAERS Safety Report 10328170 (Version 1)
Quarter: 2014Q3

REPORT INFORMATION
  Report Type: Spontaneous
  Country: CA (occurrence: CA)
  Receive Date: 20140721
  Receipt Date: 20140721
  Transmission Date: 20150326
  Serious: Yes (Other)
  Sender: FDA-Public Use
  Company Number: PHHY2014CA087881

PATIENT
  Age: 50 Year
  Sex: Female

DRUGS (2)
  1. TEGRETOL [Suspect]
     Active Substance: CARBAMAZEPINE
     Dosage: 2 DF (400 MG), EVERY 1 DAY
  2. TOPAMAX [Suspect]
     Active Substance: TOPIRAMATE
     Dosage: 25 MG, UNK

REACTIONS (1)
  - Complex partial seizures [Unknown]
